FAERS Safety Report 4984414-7 (Version None)
Quarter: 2006Q2

REPORT INFORMATION
  Report Type: 
  Country: None (occurrence: None)
  Receive Date: 20060420
  Receipt Date: 20060410
  Transmission Date: 20061013
  Serious: Yes (Hospitalization)
  Sender: FDA-Public Use
  Company Number: 2006-141087-NL

PATIENT
  Age: 37 Year
  Sex: Female

DRUGS (8)
  1. MIRTAZAPINE [Suspect]
     Indication: CONDUCT DISORDER
     Dosage: 15 MG/30 MG/15 MG TID/ 30 MG/15 MG ORAL
     Route: 048
     Dates: end: 20060304
  2. MIRTAZAPINE [Suspect]
     Indication: PANIC REACTION
     Dosage: 15 MG/30 MG/15 MG TID/ 30 MG/15 MG ORAL
     Route: 048
     Dates: end: 20060304
  3. MIRTAZAPINE [Suspect]
     Indication: CONDUCT DISORDER
     Dosage: 15 MG/30 MG/15 MG TID/ 30 MG/15 MG ORAL
     Route: 048
  4. MIRTAZAPINE [Suspect]
     Indication: PANIC REACTION
     Dosage: 15 MG/30 MG/15 MG TID/ 30 MG/15 MG ORAL
     Route: 048
  5. MIRTAZAPINE [Suspect]
     Indication: CONDUCT DISORDER
     Dosage: 15 MG/30 MG/15 MG TID/ 30 MG/15 MG ORAL
     Route: 048
  6. MIRTAZAPINE [Suspect]
     Indication: PANIC REACTION
     Dosage: 15 MG/30 MG/15 MG TID/ 30 MG/15 MG ORAL
     Route: 048
  7. MIRTAZAPINE [Suspect]
     Indication: CONDUCT DISORDER
     Dosage: 15 MG/30 MG/15 MG TID/ 30 MG/15 MG ORAL
     Route: 048
     Dates: start: 20050604
  8. MIRTAZAPINE [Suspect]
     Indication: PANIC REACTION
     Dosage: 15 MG/30 MG/15 MG TID/ 30 MG/15 MG ORAL
     Route: 048
     Dates: start: 20050604

REACTIONS (4)
  - DECREASED APPETITE [None]
  - DRUG WITHDRAWAL SYNDROME [None]
  - SEDATION [None]
  - THIRST [None]
